FAERS Safety Report 22165109 (Version 1)
Quarter: 2023Q2

REPORT INFORMATION
  Report Type: Spontaneous
  Country: CO (occurrence: CO)
  Receive Date: 20230403
  Receipt Date: 20230403
  Transmission Date: 20230721
  Serious: Yes (Death, Other)
  Sender: FDA-Public Use
  Company Number: CO-BAXTER-2023BAX017069

PATIENT
  Age: 62 Year
  Sex: Female
  Weight: 96.5 kg

DRUGS (1)
  1. DIANEAL PD-2 WITH DEXTROSE [Suspect]
     Active Substance: CALCIUM CHLORIDE\DEXTROSE\MAGNESIUM CHLORIDE\SODIUM CHLORIDE\SODIUM LACTATE
     Indication: Peritoneal dialysis
     Dosage: 2 BAGS OF 6L PER DAY
     Route: 033
     Dates: start: 20211216

REACTIONS (1)
  - Death [Fatal]
